FAERS Safety Report 4568086-1 (Version None)
Quarter: 2005Q1

REPORT INFORMATION
  Report Type: 
  Country: None (occurrence: None)
  Receive Date: 20050128
  Receipt Date: 20050118
  Transmission Date: 20050727
  Serious: Yes (Other)
  Sender: FDA-Public Use
  Company Number: 2005UW00874

PATIENT
  Age: 70 Year
  Sex: Female

DRUGS (4)
  1. SEROQUEL [Suspect]
     Dosage: 200 MG PO
     Route: 048
     Dates: start: 20041001
  2. NAPROXEN [Concomitant]
  3. ATENOLOL [Concomitant]
  4. PRAVACHOL [Concomitant]

REACTIONS (8)
  - CEREBROVASCULAR ACCIDENT [None]
  - DISORIENTATION [None]
  - DIZZINESS [None]
  - DRY MOUTH [None]
  - MEDICATION ERROR [None]
  - MYOCARDIAL INFARCTION [None]
  - SPEECH DISORDER [None]
  - SWOLLEN TONGUE [None]
